FAERS Safety Report 8029858-4 (Version None)
Quarter: 2012Q1

REPORT INFORMATION
  Report Type: 
  Country: None (occurrence: None)
  Receive Date: 20120109
  Receipt Date: 20111227
  Transmission Date: 20120608
  Serious: Yes (Hospitalization)
  Sender: FDA-Public Use
  Company Number: JP-SANOFI-AVENTIS-2011SA075280

PATIENT
  Age: 73 Year
  Sex: Male
  Weight: 70 kg

DRUGS (11)
  1. OLOPATADINE HCL [Concomitant]
     Dosage: DRUG NAM EREPORTED AS ALLELOCK (5) 2T
  2. ANTITHROMBOTIC AGENTS [Concomitant]
  3. CONIEL [Concomitant]
     Indication: HYPERTENSION
  4. PLAVIX [Suspect]
     Indication: CEREBRAL INFARCTION
     Route: 048
     Dates: start: 20111102, end: 20111108
  5. ANPLAG [Concomitant]
  6. ASPIRIN [Concomitant]
     Indication: CAROTID ARTERY OCCLUSION
  7. BASEN [Concomitant]
  8. ANPLAG [Concomitant]
  9. TRICOR [Concomitant]
     Dosage: DRUG NAME REPORTED AS TRICOR (100) 1C
  10. DIOVAN [Concomitant]
     Dosage: DRUG NAME REPORTED AS DIOVAN (80) 1T
  11. NOVORAPID [Concomitant]
     Dosage: DOSE: 16-0-10 UNITS

REACTIONS (1)
  - BLOOD GLUCOSE INCREASED [None]
